FAERS Safety Report 6391807-2 (Version None)
Quarter: 2009Q4

REPORT INFORMATION
  Report Type: 
  Country: None (occurrence: None)
  Receive Date: 20091007
  Receipt Date: 20080721
  Transmission Date: 20100525
  Serious: No
  Sender: FDA-Public Use
  Company Number: US-ASTRAZENECA-2008UW15173

PATIENT
  Age: 65 Year
  Sex: Female
  Weight: 77.1 kg

DRUGS (5)
  1. SEROQUEL [Suspect]
     Indication: BIPOLAR I DISORDER
     Route: 048
     Dates: start: 20040101
  2. EFFEXOR XR [Concomitant]
  3. ADORAX [Concomitant]
     Indication: ANXIETY
  4. KLONOPIN [Concomitant]
  5. MIRAPEX [Concomitant]

REACTIONS (2)
  - BODY HEIGHT DECREASED [None]
  - RESTLESS LEGS SYNDROME [None]
